FAERS Safety Report 11283828 (Version 7)
Quarter: 2015Q4

REPORT INFORMATION
  Report Type: Spontaneous
  Country: US (occurrence: US)
  Receive Date: 20150720
  Receipt Date: 20151214
  Transmission Date: 20160304
  Serious: Yes (Hospitalization)
  Sender: FDA-Public Use
  Company Number: US-PFIZER INC-2015236815

PATIENT
  Age: 75 Year
  Sex: Female
  Weight: 43 kg

DRUGS (8)
  1. SUTENT [Suspect]
     Active Substance: SUNITINIB MALATE
     Dosage: 37.5 MG, CYCLIC (2 WEEKS ON/1 WEEK OFF)
     Route: 048
     Dates: start: 20150821, end: 20150924
  2. SUTENT [Suspect]
     Active Substance: SUNITINIB MALATE
     Dosage: 25 MG, CYCLIC (2 WEEKS ON/1 WEEK OFF)
     Dates: start: 20151021, end: 20151124
  3. ZOFRAN [Concomitant]
     Active Substance: ONDANSETRON HYDROCHLORIDE
     Dosage: UNK
     Dates: start: 20150821
  4. SUTENT [Suspect]
     Active Substance: SUNITINIB MALATE
     Dosage: 50 MG, 1X/DAY
     Dates: start: 201507, end: 20151101
  5. SUTENT [Suspect]
     Active Substance: SUNITINIB MALATE
     Indication: RENAL CANCER STAGE IV
     Dosage: 37.5 MG, CYCLIC (28 DAYS ON/14 DAYS OFF)
     Route: 048
     Dates: start: 20150709, end: 20150820
  6. IMODIUM [Concomitant]
     Active Substance: LOPERAMIDE HYDROCHLORIDE
     Dosage: UNK
  7. TYLENOL [Concomitant]
     Active Substance: ACETAMINOPHEN
     Dosage: UNK
  8. VITAMINS [Concomitant]
     Active Substance: VITAMINS
     Dosage: UNK

REACTIONS (28)
  - Diarrhoea [Recovered/Resolved]
  - Alopecia [Unknown]
  - Weight decreased [Unknown]
  - Disturbance in attention [Unknown]
  - Blood pressure decreased [Unknown]
  - Dyspepsia [Recovered/Resolved]
  - Hypophagia [Unknown]
  - Hypoaesthesia [Recovered/Resolved]
  - Constipation [Unknown]
  - Mental disorder [Unknown]
  - Dehydration [Unknown]
  - Fatigue [Recovered/Resolved]
  - Sleep disorder [Recovered/Resolved]
  - Retching [Unknown]
  - Faeces discoloured [Unknown]
  - Crying [Unknown]
  - Neuropathy peripheral [Recovered/Resolved]
  - Pain in extremity [Unknown]
  - Stomatitis [Recovered/Resolved]
  - Pyrexia [Unknown]
  - Asthenia [Not Recovered/Not Resolved]
  - Dyspnoea [Unknown]
  - Paraesthesia [Unknown]
  - Migraine [Unknown]
  - Chills [Unknown]
  - Pneumonia [Unknown]
  - Nausea [Recovered/Resolved]
  - Vomiting [Unknown]

NARRATIVE: CASE EVENT DATE: 2015
